FAERS Safety Report 7349948-9 (Version None)
Quarter: 2011Q1

REPORT INFORMATION
  Report Type: 
  Country: None (occurrence: None)
  Receive Date: 20110314
  Receipt Date: 20110303
  Transmission Date: 20110831
  Serious: Yes (Hospitalization)
  Sender: FDA-Public Use
  Company Number: US-ASTRAZENECA-2010SE38597

PATIENT
  Age: 56 Year
  Sex: Female
  Weight: 96.2 kg

DRUGS (4)
  1. CLONAZEPAM [Concomitant]
     Dosage: PRN
  2. SEROQUEL XR [Suspect]
     Indication: BIPOLAR DISORDER
     Route: 048
     Dates: start: 20100101, end: 20110101
  3. LAMOTRIGINE [Concomitant]
  4. LAMOTRIGINE [Concomitant]

REACTIONS (7)
  - WEIGHT INCREASED [None]
  - PANIC ATTACK [None]
  - LOGORRHOEA [None]
  - DYSPNOEA [None]
  - SOMNOLENCE [None]
  - MOOD SWINGS [None]
  - SEDATION [None]
